FAERS Safety Report 9410151 (Version 2)
Quarter: 2013Q3

REPORT INFORMATION
  Report Type: Spontaneous
  Country: FR (occurrence: FR)
  Receive Date: 20130719
  Receipt Date: 20130911
  Transmission Date: 20140515
  Serious: Yes (Hospitalization)
  Sender: FDA-Public Use
  Company Number: FR-B.I. PHARMACEUTICALS,INC./RIDGEFIELD-2013-FF-01870FF

PATIENT
  Sex: Male

DRUGS (1)
  1. MECIR [Suspect]
     Dosage: 0.4 MG
     Route: 048
     Dates: start: 201306, end: 201307

REACTIONS (4)
  - Shock [Not Recovered/Not Resolved]
  - Toxicity to various agents [Not Recovered/Not Resolved]
  - Anuria [Not Recovered/Not Resolved]
  - Hypotension [Not Recovered/Not Resolved]
